FAERS Safety Report 24100925 (Version 1)
Quarter: 2024Q3

REPORT INFORMATION
  Report Type: Spontaneous
  Country: US (occurrence: US)
  Receive Date: 20240717
  Receipt Date: 20240717
  Transmission Date: 20241017
  Serious: No
  Sender: NOVO NORDISK
  Company Number: US-NOVOPROD-1224755

PATIENT
  Sex: Female

DRUGS (1)
  1. OZEMPIC [Suspect]
     Active Substance: SEMAGLUTIDE
     Indication: Type 2 diabetes mellitus
     Dosage: 0.25 MG, QM
     Route: 058

REACTIONS (7)
  - Post-acute COVID-19 syndrome [Unknown]
  - Pain in extremity [Unknown]
  - Myalgia [Unknown]
  - Neuralgia [Unknown]
  - Hepatic steatosis [Unknown]
  - Constipation [Unknown]
  - Off label use [Unknown]
